FAERS Safety Report 8476662 (Version 4)
Quarter: 2014Q2

REPORT INFORMATION
  Report Type: Report from Study
  Country: GB (occurrence: GB)
  Receive Date: 20120326
  Receipt Date: 20140522
  Transmission Date: 20141212
  Serious: Yes (Life-Threatening)
  Sender: FDA-Public Use
  Company Number: GB-ROCHE-1052225

PATIENT
  Age: 47 Year
  Sex: Male
  Weight: 89.4 kg

DRUGS (2)
  1. VEMURAFENIB [Suspect]
     Indication: METASTATIC MALIGNANT MELANOMA
     Dosage: DATE OF LAST DOSE PRIOR TO EVENT: 20/MAR/2012
     Route: 048
     Dates: start: 20111130, end: 20120321
  2. VEMURAFENIB [Suspect]
     Route: 048
     Dates: start: 20120413

REACTIONS (1)
  - Intestinal perforation [Recovered/Resolved]
